FAERS Safety Report 13133765 (Version 1)
Quarter: 2017Q1

REPORT INFORMATION
  Report Type: Spontaneous
  Country: US (occurrence: US)
  Receive Date: 20170119
  Receipt Date: 20170119
  Transmission Date: 20170428
  Serious: Yes (Hospitalization)
  Sender: FDA-Public Use
  Company Number: None

PATIENT
  Age: 64 Year
  Sex: Female

DRUGS (10)
  1. FLUOXETINE [Concomitant]
     Active Substance: FLUOXETINE HYDROCHLORIDE
  2. OXYBUTYNIN [Suspect]
     Active Substance: OXYBUTYNIN
  3. DESTROAMPHETAMINE [Concomitant]
  4. CARBAMAZAPINE [Concomitant]
     Active Substance: CARBAMAZEPINE
  5. ALBUTEROL. [Concomitant]
     Active Substance: ALBUTEROL
  6. OMEPRAZOLE. [Concomitant]
     Active Substance: OMEPRAZOLE
  7. BECLOMETHASONE [Concomitant]
     Active Substance: BECLOMETHASONE
  8. SIMVASTATIN. [Concomitant]
     Active Substance: SIMVASTATIN
  9. AMPYRA [Suspect]
     Active Substance: DALFAMPRIDINE
     Indication: MULTIPLE SCLEROSIS
     Route: 048
     Dates: start: 201606
  10. LEVOTHYROXINE. [Concomitant]
     Active Substance: LEVOTHYROXINE

REACTIONS (3)
  - CD4 lymphocytes increased [None]
  - B-lymphocyte count decreased [None]
  - CD8 lymphocytes decreased [None]

NARRATIVE: CASE EVENT DATE: 20161224
